FAERS Safety Report 5011130-8 (Version None)
Quarter: 2006Q2

REPORT INFORMATION
  Report Type: 
  Country: None (occurrence: None)
  Receive Date: 20060525
  Receipt Date: 20060523
  Transmission Date: 20061013
  Serious: Yes (Death)
  Sender: FDA-Public Use
  Company Number: 2006AP02315

PATIENT
  Age: 76 Year
  Sex: Male

DRUGS (13)
  1. SEROQUEL [Suspect]
     Indication: SCHIZOPHRENIA
     Route: 048
     Dates: start: 20060515, end: 20060515
  2. SEROQUEL [Suspect]
     Indication: HALLUCINATION
     Route: 048
     Dates: start: 20060515, end: 20060515
  3. SEROQUEL [Suspect]
     Indication: HALLUCINATION, VISUAL
     Route: 048
     Dates: start: 20060515, end: 20060515
  4. HALCION [Concomitant]
     Route: 048
  5. MYSLEE [Concomitant]
     Route: 048
  6. PAXIL [Concomitant]
     Route: 048
  7. UNIPHYL [Concomitant]
     Route: 048
  8. LASIX [Concomitant]
     Route: 048
  9. AMLODIN [Concomitant]
     Route: 048
  10. GASTER [Concomitant]
     Route: 048
  11. MUCOSTA [Concomitant]
     Route: 048
  12. GASMOTIN [Concomitant]
     Route: 048
  13. HOKUNALIN [Concomitant]
     Route: 061

REACTIONS (3)
  - CYANOSIS [None]
  - DEATH [None]
  - LOSS OF CONSCIOUSNESS [None]
